FAERS Safety Report 21369541 (Version 1)
Quarter: 2022Q3

REPORT INFORMATION
  Report Type: Report from Study
  Country: US (occurrence: US)
  Receive Date: 20220923
  Receipt Date: 20220923
  Transmission Date: 20221026
  Serious: Yes (Other)
  Sender: FDA-Public Use
  Company Number: US-ABBVIE-4129157

PATIENT
  Sex: Female

DRUGS (4)
  1. HUMIRA [Suspect]
     Active Substance: ADALIMUMAB
     Indication: Product used for unknown indication
     Route: 058
  2. MODERNA COVID-19 VACCINATION [Concomitant]
     Indication: COVID-19 immunisation
     Dosage: FREQUENCY- ONCE??FIRST DOSE
     Route: 030
     Dates: start: 20210203, end: 20210203
  3. MODERNA COVID-19 VACCINATION [Concomitant]
     Indication: COVID-19 immunisation
     Dosage: FREQUENCY- ONCE??SECOND DOSE
     Route: 030
     Dates: start: 20210302, end: 20210302
  4. Pfizer BioNTech Covid-19 Vaccination [Concomitant]
     Indication: COVID-19 immunisation
     Dosage: BOOSTER DOSE, 1 IN ONCE
     Route: 030
     Dates: start: 20210817, end: 20210817

REACTIONS (3)
  - Cataract [Not Recovered/Not Resolved]
  - Visual impairment [Unknown]
  - Eye infection [Recovered/Resolved]
